FAERS Safety Report 20690817 (Version 1)
Quarter: 2022Q2

REPORT INFORMATION
  Report Type: Report from Study
  Country: US (occurrence: US)
  Receive Date: 20220408
  Receipt Date: 20220408
  Transmission Date: 20220721
  Serious: Yes (Hospitalization, Other)
  Sender: FDA-Public Use
  Company Number: US-ALLERGAN-2211348US

PATIENT

DRUGS (1)
  1. NEBIVOLOL [Suspect]
     Active Substance: NEBIVOLOL
     Indication: Product used for unknown indication
     Dosage: 10 MG, QD

REACTIONS (5)
  - COVID-19 [Unknown]
  - Myocardial ischaemia [Unknown]
  - Coronary artery disease [Unknown]
  - Hypertension [Unknown]
  - Asthenia [Unknown]
